FAERS Safety Report 6506483-5 (Version None)
Quarter: 2009Q4

REPORT INFORMATION
  Report Type: 
  Country: None (occurrence: None)
  Receive Date: 20091221
  Receipt Date: 20091215
  Transmission Date: 20100525
  Serious: Yes (Death)
  Sender: FDA-Public Use
  Company Number: JP-BIOGENIDEC-2009BI041018

PATIENT
  Sex: Male

DRUGS (2)
  1. AVONEX [Suspect]
     Indication: RELAPSING-REMITTING MULTIPLE SCLEROSIS
     Route: 030
     Dates: start: 20070808, end: 20090101
  2. LIORESAL [Concomitant]
     Dates: start: 20070613, end: 20090101

REACTIONS (1)
  - DEATH [None]
